FAERS Safety Report 17036990 (Version 2)
Quarter: 2020Q1

REPORT INFORMATION
  Report Type: Spontaneous
  Country: CN (occurrence: CN)
  Receive Date: 20191115
  Receipt Date: 20200306
  Transmission Date: 20200409
  Serious: Yes (Other)
  Sender: FDA-Public Use
  Company Number: CN-AMNEAL PHARMACEUTICALS-2019-IPXL-01524

PATIENT
  Age: 40 Year
  Sex: Female

DRUGS (1)
  1. ALBENZA [Suspect]
     Active Substance: ALBENDAZOLE
     Indication: HELMINTHIC INFECTION
     Dosage: 2 DOSAGE FORM Z (WEEK AGO)
     Route: 065

REACTIONS (4)
  - Exposure during pregnancy [Unknown]
  - Menstruation delayed [Unknown]
  - Product use in unapproved indication [Unknown]
  - Abortion spontaneous [Unknown]
